FAERS Safety Report 20668895 (Version 1)
Quarter: 2022Q2

REPORT INFORMATION
  Report Type: Spontaneous
  Country: US (occurrence: None)
  Receive Date: 20220402
  Receipt Date: 20220402
  Transmission Date: 20220721
  Serious: Yes (Other)
  Sender: FDA-Public Use
  Company Number: None

PATIENT
  Age: 81 Year
  Sex: Male
  Weight: 83.25 kg

DRUGS (4)
  1. ALENDRONATE SODIUM [Suspect]
     Active Substance: ALENDRONATE SODIUM
     Indication: Osteoporosis
     Dosage: OTHER QUANTITY : 1 TABLET(S);?OTHER FREQUENCY : ONE WEEKLY;?
     Route: 048
     Dates: start: 20220207, end: 20220325
  2. MINERALS\VITAMINS [Concomitant]
     Active Substance: MINERALS\VITAMINS
  3. calcium citrate + vitamin D3 [Concomitant]
  4. D3 1000 IU [Concomitant]

REACTIONS (5)
  - Fatigue [None]
  - Arthralgia [None]
  - Myalgia [None]
  - Neck pain [None]
  - Mobility decreased [None]

NARRATIVE: CASE EVENT DATE: 20220319
